FAERS Safety Report 10015732 (Version 2)
Quarter: 2014Q4

REPORT INFORMATION
  Report Type: Spontaneous
  Country: US (occurrence: US)
  Receive Date: 20140317
  Receipt Date: 20141106
  Transmission Date: 20150528
  Serious: Yes (Other)
  Sender: FDA-Public Use
  Company Number: US-BAYER-2014-039325

PATIENT
  Age: 21 Year
  Sex: Female
  Weight: 51.7 kg

DRUGS (1)
  1. MIRENA [Suspect]
     Active Substance: LEVONORGESTREL
     Indication: CONTRACEPTION
     Dosage: 20 MCG/24HR, CONT
     Route: 015
     Dates: start: 20080218, end: 20130718

REACTIONS (10)
  - Device misuse [None]
  - Off label use [None]
  - Emotional distress [None]
  - Uterine perforation [None]
  - Injury [None]
  - Infertility female [None]
  - Depression [None]
  - Device issue [None]
  - Pain [None]
  - Anxiety [None]

NARRATIVE: CASE EVENT DATE: 201307
